FAERS Safety Report 7164045-3 (Version None)
Quarter: 2010Q4

REPORT INFORMATION
  Report Type: 
  Country: None (occurrence: None)
  Receive Date: 20101215
  Receipt Date: 20101213
  Transmission Date: 20110411
  Serious: Yes (Life-Threatening)
  Sender: FDA-Public Use
  Company Number: B0688719A

PATIENT
  Sex: Female

DRUGS (6)
  1. AUGMENTIN '125' [Suspect]
     Indication: SIGMOIDITIS
     Dosage: 1G SINGLE DOSE
     Route: 042
     Dates: start: 20101102, end: 20101102
  2. CRESTOR [Concomitant]
     Route: 065
  3. IMOVANE [Concomitant]
     Indication: SLEEP DISORDER
     Route: 065
  4. ALMOGRAN [Concomitant]
     Indication: MIGRAINE
     Route: 065
  5. SPASFON [Concomitant]
     Indication: ABDOMINAL PAIN
     Dosage: 40MG PER DAY
     Route: 042
     Dates: start: 20101102
  6. TOPALGIC (FRANCE) [Concomitant]
     Indication: PAIN
     Dosage: 100MG PER DAY
     Route: 042
     Dates: start: 20101102

REACTIONS (5)
  - ANAPHYLACTIC SHOCK [None]
  - HEADACHE [None]
  - MALAISE [None]
  - RASH [None]
  - VOMITING [None]
